APPROVED DRUG PRODUCT: ZIDOVUDINE
Active Ingredient: ZIDOVUDINE
Strength: 300MG
Dosage Form/Route: TABLET;ORAL
Application: A078922 | Product #001
Applicant: PHARMOBEDIENT CONSULTING LLC
Approved: Feb 14, 2008 | RLD: No | RS: No | Type: DISCN